FAERS Safety Report 5692255-0 (Version None)
Quarter: 2008Q1

REPORT INFORMATION
  Report Type: 
  Country: None (occurrence: None)
  Receive Date: 20080331
  Receipt Date: 20080318
  Transmission Date: 20080703
  Serious: Yes (Death, Hospitalization)
  Sender: FDA-Public Use
  Company Number: B0479920A

PATIENT
  Age: 28 Year
  Sex: Female
  Weight: 64.8644 kg

DRUGS (6)
  1. LAMICTAL [Suspect]
     Indication: EPILEPSY
     Dosage: 25 MG/TWICE PER DAY/ORAL
     Route: 048
     Dates: start: 20070125, end: 20070207
  2. FOLIC ACID [Concomitant]
  3. VALPROATE SODIUM [Concomitant]
  4. PHENOXYMETHYLPENICILLIN [Concomitant]
  5. CEFACLOR [Concomitant]
  6. TICE BCG [Concomitant]

REACTIONS (46)
  - ABDOMINAL TENDERNESS [None]
  - ACUTE HEPATIC FAILURE [None]
  - AGITATION [None]
  - ALANINE AMINOTRANSFERASE INCREASED [None]
  - APHTHOUS STOMATITIS [None]
  - ASPARTATE AMINOTRANSFERASE INCREASED [None]
  - AXILLARY PAIN [None]
  - BLOOD ALKALINE PHOSPHATASE INCREASED [None]
  - BLOOD GLUCOSE DECREASED [None]
  - COAGULOPATHY [None]
  - CONVULSION [None]
  - CYTOMEGALOVIRUS INFECTION [None]
  - DRUG RASH WITH EOSINOPHILIA AND SYSTEMIC SYMPTOMS [None]
  - EPSTEIN-BARR VIRUS INFECTION [None]
  - FALL [None]
  - GAMMA-GLUTAMYLTRANSFERASE INCREASED [None]
  - GROIN PAIN [None]
  - HAEMATEMESIS [None]
  - HEPATIC FAILURE [None]
  - HEPATIC ISCHAEMIA [None]
  - HEPATOMEGALY [None]
  - HEPATOTOXICITY [None]
  - HYPERVENTILATION [None]
  - HYPOPERFUSION [None]
  - HYPOTENSION [None]
  - IDIOSYNCRATIC DRUG REACTION [None]
  - INTRACRANIAL PRESSURE INCREASED [None]
  - LACTIC ACIDOSIS [None]
  - LIVER DISORDER [None]
  - LIVER FUNCTION TEST ABNORMAL [None]
  - LIVER TRANSPLANT [None]
  - LYMPHADENOPATHY [None]
  - MALAISE [None]
  - MONONUCLEOSIS SYNDROME [None]
  - MYOCLONUS [None]
  - NECK PAIN [None]
  - NIGHT SWEATS [None]
  - NO THERAPEUTIC RESPONSE [None]
  - PHARYNGOLARYNGEAL PAIN [None]
  - RASH MACULO-PAPULAR [None]
  - RASH MORBILLIFORM [None]
  - SOMNOLENCE [None]
  - TACHYCARDIA [None]
  - TONSILLITIS [None]
  - UNRESPONSIVE TO STIMULI [None]
  - WHITE BLOOD CELL COUNT INCREASED [None]
